FAERS Safety Report 4326338-4 (Version None)
Quarter: 2004Q1

REPORT INFORMATION
  Report Type: 
  Country: None (occurrence: None)
  Receive Date: 20040329
  Receipt Date: 20040329
  Transmission Date: 20041129
  Serious: Yes (Hospitalization)
  Sender: FDA-Public Use
  Company Number: None

PATIENT
  Age: 19 Year
  Sex: Female
  Weight: 52.1637 kg

DRUGS (2)
  1. OXYTROL [Suspect]
     Indication: CYSTITIS INTERSTITIAL
     Dosage: 1 EVERY
  2. DITROPAN XL [Suspect]
     Indication: CYSTITIS INTERSTITIAL
     Dosage: 15 MG ONCE A DAY

REACTIONS (3)
  - DYSTONIA [None]
  - SPEECH DISORDER [None]
  - TREMOR [None]
